FAERS Safety Report 13713454 (Version 2)
Quarter: 2017Q3

REPORT INFORMATION
  Report Type: Spontaneous
  Country: US (occurrence: US)
  Receive Date: 20170704
  Receipt Date: 20170711
  Transmission Date: 20171127
  Serious: Yes (Other)
  Sender: FDA-Public Use
  Company Number: US-BRISTOL-MYERS SQUIBB COMPANY-BMS-2017-056829

PATIENT
  Sex: Male
  Weight: 61.22 kg

DRUGS (1)
  1. ELIQUIS [Suspect]
     Active Substance: APIXABAN
     Indication: DEEP VEIN THROMBOSIS
     Dosage: UNK, BID
     Route: 048
     Dates: start: 201706

REACTIONS (13)
  - Choking [Unknown]
  - Drug prescribing error [Unknown]
  - Haemorrhage subcutaneous [Unknown]
  - Dysphonia [Unknown]
  - Haematochezia [Unknown]
  - Tremor [Unknown]
  - Hypotension [Unknown]
  - Fatigue [Unknown]
  - Drug ineffective [Unknown]
  - Cerebrovascular accident [Unknown]
  - Thirst [Unknown]
  - Polyuria [Unknown]
  - Pruritus [Unknown]
